FAERS Safety Report 7951230-3 (Version None)
Quarter: 2011Q4

REPORT INFORMATION
  Report Type: 
  Country: None (occurrence: None)
  Receive Date: 20111201
  Receipt Date: 20111117
  Transmission Date: 20120403
  Serious: Yes (Other)
  Sender: FDA-Public Use
  Company Number: PHHY2010BR03444

PATIENT
  Sex: Female

DRUGS (3)
  1. NORETHISTERONE ENANTATE [Concomitant]
     Indication: CONTRACEPTION
  2. TEGRETOL-XR [Suspect]
     Indication: EPILEPSY
     Dosage: 1.5 DF, (1/2 TABLET IN MORNING AND 1 TABLET AT NIGHT))
  3. ESTRADIOL VALERATE [Concomitant]
     Indication: CONTRACEPTION

REACTIONS (3)
  - DEPRESSION [None]
  - MATERNAL EXPOSURE DURING PREGNANCY [None]
  - ABORTION SPONTANEOUS [None]
